FAERS Safety Report 23329788 (Version 1)
Quarter: 2023Q4

REPORT INFORMATION
  Report Type: Report from Study
  Country: US (occurrence: US)
  Receive Date: 20231222
  Receipt Date: 20231222
  Transmission Date: 20240109
  Serious: Yes (Other)
  Sender: FDA-Public Use
  Company Number: US-ABBVIE-5546671

PATIENT
  Sex: Female

DRUGS (2)
  1. SKYRIZI [Suspect]
     Active Substance: RISANKIZUMAB-RZAA
     Indication: Psoriasis
     Route: 058
     Dates: start: 20230120
  2. ALEVE [Suspect]
     Active Substance: NAPROXEN SODIUM
     Indication: Product used for unknown indication
     Route: 065
     Dates: start: 2023, end: 2023

REACTIONS (12)
  - Gastrointestinal haemorrhage [Unknown]
  - Hirsutism [Not Recovered/Not Resolved]
  - Seizure [Unknown]
  - Arthralgia [Not Recovered/Not Resolved]
  - Abnormal weight gain [Unknown]
  - Paraesthesia [Not Recovered/Not Resolved]
  - Feeling abnormal [Not Recovered/Not Resolved]
  - Insomnia [Unknown]
  - Irritability [Unknown]
  - Balance disorder [Unknown]
  - Stress [Unknown]
  - Migraine [Unknown]

NARRATIVE: CASE EVENT DATE: 20230101
